FAERS Safety Report 5240530-6 (Version None)
Quarter: 2007Q1

REPORT INFORMATION
  Report Type: 
  Country: None (occurrence: None)
  Receive Date: 20070219
  Receipt Date: 20070209
  Transmission Date: 20070707
  Serious: Yes (Other)
  Sender: FDA-Public Use
  Company Number: US-ROCHE-478339

PATIENT
  Age: 59 Year
  Sex: Female

DRUGS (5)
  1. BONIVA [Suspect]
     Indication: DRUG USE FOR UNKNOWN INDICATION
     Route: 048
     Dates: start: 20070108
  2. PROZAC [Concomitant]
  3. MULTIVITAMIN NOS [Concomitant]
  4. CALCIUM NOS [Concomitant]
  5. GLUCOSAMINE SULFATE/CHONDROITIN [Concomitant]

REACTIONS (2)
  - HYPERSENSITIVITY [None]
  - PAIN [None]
